FAERS Safety Report 6495434-8 (Version None)
Quarter: 2009Q4

REPORT INFORMATION
  Report Type: 
  Country: None (occurrence: None)
  Receive Date: 20091214
  Receipt Date: 20090625
  Transmission Date: 20100525
  Serious: No
  Sender: FDA-Public Use
  Company Number: US-BRISTOL-MYERS SQUIBB COMPANY-14675425

PATIENT
  Age: 46 Year
  Sex: Female

DRUGS (5)
  1. ABILIFY [Suspect]
     Indication: DEPRESSION
     Dosage: 1 DF = HALF TABLET, REDUCED TO 0.5MG DAILY ON 24JUN09
     Route: 048
     Dates: start: 20090423
  2. LEXAPRO [Concomitant]
     Route: 048
  3. WELLBUTRIN XL [Concomitant]
     Route: 048
  4. NASONEX [Concomitant]
     Dosage: 2 DF = 2 SPRAYS
  5. CLARITIN-D [Concomitant]
     Indication: HYPERSENSITIVITY
     Route: 048

REACTIONS (2)
  - ABNORMAL BEHAVIOUR [None]
  - MANIA [None]
